FAERS Safety Report 8111858-7 (Version None)
Quarter: 2012Q1

REPORT INFORMATION
  Report Type: 
  Country: None (occurrence: None)
  Receive Date: 20120203
  Receipt Date: 20120131
  Transmission Date: 20120608
  Serious: Yes (Other)
  Sender: FDA-Public Use
  Company Number: CO-PFIZER INC-2012027922

PATIENT
  Age: 12 Year
  Sex: Male

DRUGS (2)
  1. GENOTROPIN [Suspect]
     Indication: BODY HEIGHT BELOW NORMAL
     Dosage: 18 MG, WEEKLY I(6 DOSES)
     Dates: start: 20111001
  2. TAMOXIFEN [Concomitant]
     Indication: BODY HEIGHT BELOW NORMAL
     Dosage: 10 MG, 1X/DAY
     Dates: start: 20111001

REACTIONS (2)
  - RASH GENERALISED [None]
  - CONJUNCTIVAL DISORDER [None]
